FAERS Safety Report 7484972-7 (Version None)
Quarter: 2011Q2

REPORT INFORMATION
  Report Type: 
  Country: None (occurrence: None)
  Receive Date: 20110517
  Receipt Date: 20110509
  Transmission Date: 20111010
  Serious: Yes (Other)
  Sender: FDA-Public Use
  Company Number: CA-ROCHE-776296

PATIENT

DRUGS (1)
  1. CEFTRIAXONE SODIUM [Suspect]
     Route: 042

REACTIONS (6)
  - PNEUMONIA [None]
  - PLEURAL EFFUSION [None]
  - HYPOKALAEMIA [None]
  - HEPATIC ENZYME INCREASED [None]
  - PHLEBITIS [None]
  - CHRONIC OBSTRUCTIVE PULMONARY DISEASE [None]
